FAERS Safety Report 8784322 (Version 1)
Quarter: 2012Q4

REPORT INFORMATION
  Report Type: 
  Country: DE (occurrence: DE)
  Receive Date: 20120913
  Receipt Date: 20120913
  Transmission Date: 20130627
  Serious: Yes (Life-Threatening, Hospitalization, Other)
  Sender: FDA-Public Use
  Company Number: DE-VERTEX PHARMACEUTICAL INC.-000000000000000626

PATIENT
  Age: 52 Year
  Sex: Male
  Weight: 85 kg

DRUGS (6)
  1. INCIVO [Suspect]
     Indication: HEPATITIS C
     Dosage: 6 DF, qd
     Route: 048
     Dates: start: 20120330, end: 20120507
  2. COPEGUS [Concomitant]
     Indication: PRODUCT USED FOR UNKNOWN INDICATION
     Dosage: 1200 mg, UNK
     Route: 065
  3. COPEGUS [Concomitant]
     Dosage: 600 mg, UNK
     Route: 065
  4. PEGASYS [Concomitant]
     Indication: PRODUCT USED FOR UNKNOWN INDICATION
     Dosage: UNK
     Route: 065
  5. PEGASYS [Concomitant]
     Dosage: Dosage Form: Unspecified
     Route: 065
  6. REYATAZ [Concomitant]
     Dosage: Dosage Form: Unspecified
     Route: 065

REACTIONS (3)
  - Anaemia [Unknown]
  - Pancytopenia [Unknown]
  - Neutropenia [Unknown]
